FAERS Safety Report 5936743-8 (Version None)
Quarter: 2008Q4

REPORT INFORMATION
  Report Type: 
  Country: None (occurrence: None)
  Receive Date: 20081029
  Receipt Date: 20081016
  Transmission Date: 20090506
  Serious: Yes (Hospitalization, Other)
  Sender: FDA-Public Use
  Company Number: 035684

PATIENT
  Age: 10 Year
  Sex: Male
  Weight: 37.5 kg

DRUGS (1)
  1. METHOTREXATE [Suspect]
     Indication: BONE SARCOMA
     Dosage: 16 G, (12.7 G/M2), INTRAVENOUS
     Route: 042

REACTIONS (11)
  - ABDOMINAL PAIN [None]
  - ALANINE AMINOTRANSFERASE INCREASED [None]
  - ASPARTATE AMINOTRANSFERASE INCREASED [None]
  - BLISTER [None]
  - BLOOD BILIRUBIN INCREASED [None]
  - BLOOD CREATININE INCREASED [None]
  - LIVER DISORDER [None]
  - MUCOSAL INFLAMMATION [None]
  - RENAL DISORDER [None]
  - STOMATITIS [None]
  - VISION BLURRED [None]
